FAERS Safety Report 20565905 (Version 1)
Quarter: 2022Q1

REPORT INFORMATION
  Report Type: Spontaneous
  Country: US (occurrence: None)
  Receive Date: 20220307
  Receipt Date: 20220307
  Transmission Date: 20220423
  Serious: Yes (Life-Threatening, Hospitalization, Disabling)
  Sender: FDA-Public Use
  Company Number: None

PATIENT
  Age: 90 Year
  Sex: Female
  Weight: 58.5 kg

DRUGS (14)
  1. OLANZAPINE [Suspect]
     Active Substance: OLANZAPINE
     Indication: Insomnia
     Dosage: OTHER QUANTITY : 1 TABLET(S);?FREQUENCY : AT BEDTIME;?
     Route: 048
  2. PROPRANOLOL [Concomitant]
  3. POTASSIUM [Concomitant]
  4. LOSARTAN [Concomitant]
     Active Substance: LOSARTAN
  5. DILTIAZEM [Concomitant]
  6. FAMOTIDINE [Concomitant]
     Active Substance: FAMOTIDINE
  7. HYDROCHLOROTHIAZIDE [Concomitant]
  8. LEVOTHROXINE [Concomitant]
  9. XARELTO [Concomitant]
     Active Substance: RIVAROXABAN
  10. TRIMETHOPRIM [Concomitant]
  11. CITALOPRAM [Concomitant]
     Active Substance: CITALOPRAM HYDROBROMIDE
  12. ALPRAZOLAM [Concomitant]
     Active Substance: ALPRAZOLAM
  13. MINERALS\VITAMINS [Concomitant]
     Active Substance: MINERALS\VITAMINS
  14. REFRESH CLASSIC [Concomitant]
     Active Substance: POLYVINYL ALCOHOL\POVIDONE

REACTIONS (8)
  - Delirium [None]
  - Gait inability [None]
  - Speech disorder [None]
  - COVID-19 [None]
  - Fall [None]
  - Hip fracture [None]
  - Hallucination [None]
  - Unresponsive to stimuli [None]

NARRATIVE: CASE EVENT DATE: 20211220
